FAERS Safety Report 7473058-3 (Version None)
Quarter: 2011Q2

REPORT INFORMATION
  Report Type: 
  Country: None (occurrence: None)
  Receive Date: 20110511
  Receipt Date: 20110429
  Transmission Date: 20111010
  Serious: Yes (Life-Threatening, Other)
  Sender: FDA-Public Use
  Company Number: FR-ELI_LILLY_AND_COMPANY-FR201101000146

PATIENT
  Sex: Female

DRUGS (6)
  1. HAEMOPHILUS INFLUENZAE VACCINE [Concomitant]
  2. PROZAC [Suspect]
     Indication: DEPRESSION
     Dosage: 20 MG, DAILY (1/D)
     Route: 048
     Dates: start: 20090101, end: 20100301
  3. MENINGOCOCCAL VACCINE [Concomitant]
  4. LEXOMIL [Concomitant]
     Dosage: 0.75 D/F, DAILY (1/D)
     Route: 048
     Dates: start: 20090101, end: 20100301
  5. GARDENAL [Concomitant]
     Indication: EPILEPSY
     Dosage: 0.5 D/F, DAILY (1/D)
     Route: 048
     Dates: start: 19800101, end: 20100301
  6. PNEUMOCOCCAL VACCINE [Concomitant]

REACTIONS (8)
  - SYSTEMIC INFLAMMATORY RESPONSE SYNDROME [None]
  - MICROCYTIC ANAEMIA [None]
  - GASTROINTESTINAL NECROSIS [None]
  - SPLENIC INJURY [None]
  - HALLUCINATION [None]
  - PORTAL VEIN THROMBOSIS [None]
  - PNEUMONIA [None]
  - PYREXIA [None]
